FAERS Safety Report 7632476-0 (Version None)
Quarter: 2011Q3

REPORT INFORMATION
  Report Type: 
  Country: None (occurrence: None)
  Receive Date: 20110725
  Receipt Date: 20100917
  Transmission Date: 20111222
  Serious: No
  Sender: FDA-Public Use
  Company Number: US-BRISTOL-MYERS SQUIBB COMPANY-15292352

PATIENT
  Age: 84 Year
  Sex: Female

DRUGS (4)
  1. COUMADIN [Suspect]
     Dosage: STARTED A YR AGO INCREASED TO 4MG
  2. TOPROL-XL [Concomitant]
  3. NORVASC [Concomitant]
  4. SIMVASTATIN [Concomitant]

REACTIONS (2)
  - HEART RATE INCREASED [None]
  - INTERNATIONAL NORMALISED RATIO ABNORMAL [None]
